FAERS Safety Report 5423750-7 (Version None)
Quarter: 2007Q3

REPORT INFORMATION
  Report Type: 
  Country: None (occurrence: None)
  Receive Date: 20070727
  Receipt Date: 20040727
  Transmission Date: 20080115
  Serious: Yes (Other)
  Sender: FDA-Public Use
  Company Number: THYM-10166

PATIENT
  Age: 32 Year
  Sex: Female
  Weight: 72 kg

DRUGS (1)
  1. THYMOGLOBULIN [Suspect]
     Indication: CROSSMATCH
     Dosage: 100 MG
     Dates: start: 20040510, end: 20040510

REACTIONS (1)
  - GRAFT THROMBOSIS [None]
